FAERS Safety Report 6617535-3 (Version None)
Quarter: 2010Q1

REPORT INFORMATION
  Report Type: 
  Country: None (occurrence: None)
  Receive Date: 20100308
  Receipt Date: 20100305
  Transmission Date: 20100710
  Serious: Yes (Death, Hospitalization, Other)
  Sender: FDA-Public Use
  Company Number: US-ASTRAZENECA-2007UW05557

PATIENT
  Age: 31 Year
  Sex: Female
  Weight: 63.5 kg

DRUGS (37)
  1. SEROQUEL [Suspect]
     Indication: BIPOLAR DISORDER
     Dosage: 25-300MG
     Route: 048
     Dates: start: 19990823, end: 20061201
  2. SEROQUEL [Suspect]
     Indication: DEPRESSION
     Dosage: 25-300MG
     Route: 048
     Dates: start: 19990823, end: 20061201
  3. SEROQUEL [Suspect]
     Indication: BIPOLAR I DISORDER
     Dosage: 25-300MG
     Route: 048
     Dates: start: 19990823, end: 20061201
  4. FLAGYL [Concomitant]
     Route: 048
  5. FLONASE [Concomitant]
     Route: 065
  6. PAXIL [Concomitant]
     Dosage: 10-40 MG
     Route: 048
     Dates: start: 19990217, end: 20000619
  7. TAGAMET [Concomitant]
     Route: 048
  8. ALBUTEROL [Concomitant]
     Dosage: 90 UG-17 MG
     Route: 065
  9. AEROBID [Concomitant]
     Route: 065
  10. POTASSIUM CHLORIDE [Concomitant]
     Route: 065
  11. HYDROMORPHONE HCL [Concomitant]
     Route: 065
  12. HYDROMORPHONE HCL [Concomitant]
     Dosage: 1 - 2 MG/ML
     Route: 065
  13. METOCLOPRAMIDE [Concomitant]
     Dosage: 5-10 MG/ML
     Route: 065
  14. CLONAZEPAM [Concomitant]
     Route: 065
     Dates: start: 20061101
  15. NYSTATIN [Concomitant]
     Route: 065
  16. AMYLASE-LIPASE-PROTEASE CAPSULE [Concomitant]
     Route: 065
  17. WELLBUTRIN [Concomitant]
     Dosage: 100-200 MG
     Route: 065
     Dates: start: 20050908
  18. LEXAPRO [Concomitant]
     Dosage: 10-20 MG
     Route: 048
     Dates: start: 20051201, end: 20090101
  19. BACLOFEN [Concomitant]
     Dosage: 10-20 MG
     Route: 065
  20. PHENERGAN HCL [Concomitant]
     Indication: NAUSEA
     Route: 065
  21. PHENERGAN HCL [Concomitant]
     Indication: VOMITING
     Route: 065
  22. ADVAIR DISKUS 100/50 [Concomitant]
     Route: 065
  23. ZOCOR [Concomitant]
     Route: 065
  24. SINGULAIR [Concomitant]
     Route: 065
  25. TRAZODONE HCL [Concomitant]
     Dosage: 50-150 MG
     Route: 065
     Dates: start: 20060302, end: 20090101
  26. GLIPIZIDE [Concomitant]
     Route: 065
  27. CLARITIN [Concomitant]
     Route: 065
  28. PRILOSEC [Concomitant]
     Dosage: 20-40 MG
     Route: 065
  29. COMBIVENT [Concomitant]
     Route: 065
  30. ALEVE (CAPLET) [Concomitant]
     Route: 065
  31. ESGIC [Concomitant]
     Dosage: 50-325-40 MG
     Route: 065
  32. PERCOCET [Concomitant]
     Dosage: 5/325 MG
     Route: 065
  33. ZOMIG [Concomitant]
     Dosage: 2.5-5 MG
     Route: 065
  34. SERZONE [Concomitant]
     Dosage: 100-150 MG
     Route: 065
     Dates: start: 20000619, end: 20001221
  35. ATENOLOL [Concomitant]
     Route: 065
  36. RISPERDAL [Concomitant]
     Dates: start: 20050908
  37. PROZAC [Concomitant]
     Dates: start: 19900101

REACTIONS (7)
  - DEATH [None]
  - GASTRIC DISORDER [None]
  - HYPERGLYCAEMIA [None]
  - PANCREATITIS ACUTE [None]
  - PANCREATITIS CHRONIC [None]
  - PANCREATITIS RELAPSING [None]
  - PSEUDOCYST [None]
